FAERS Safety Report 15034642 (Version 12)
Quarter: 2019Q1

REPORT INFORMATION
  Report Type: Report from Study
  Country: CA (occurrence: CA)
  Receive Date: 20180620
  Receipt Date: 20190218
  Transmission Date: 20190417
  Serious: Yes (Other)
  Sender: FDA-Public Use
  Company Number: CA-BRISTOL-MYERS SQUIBB COMPANY-BMS-2018-029318

PATIENT
  Age: 39 Year
  Sex: Female

DRUGS (11)
  1. NAPROXEN. [Concomitant]
     Active Substance: NAPROXEN
     Indication: PRODUCT USED FOR UNKNOWN INDICATION
     Route: 065
  2. LAX-A-DAY [Concomitant]
     Indication: PRODUCT USED FOR UNKNOWN INDICATION
     Route: 065
  3. NIVOLUMAB [Suspect]
     Active Substance: NIVOLUMAB
     Indication: MALIGNANT MELANOMA
     Dosage: 480 MG, EVERY 4 SEM
     Route: 042
     Dates: start: 20180327, end: 20190109
  4. YERVOY [Suspect]
     Active Substance: IPILIMUMAB
     Indication: MALIGNANT MELANOMA
     Dosage: 3 MG/KG (300 MG), Q3WK
     Route: 065
     Dates: start: 20180327
  5. MS-IR [Concomitant]
     Indication: PRODUCT USED FOR UNKNOWN INDICATION
     Route: 065
  6. PANTOLOC                           /01263201/ [Concomitant]
     Active Substance: PANTOPRAZOLE SODIUM
     Indication: PRODUCT USED FOR UNKNOWN INDICATION
     Route: 065
  7. FENTANYL. [Suspect]
     Active Substance: FENTANYL
     Indication: PRODUCT USED FOR UNKNOWN INDICATION
     Route: 065
  8. REACTIN                            /00372302/ [Concomitant]
     Indication: PRODUCT USED FOR UNKNOWN INDICATION
     Route: 065
  9. CETRIZINE [Concomitant]
     Active Substance: CETIRIZINE HYDROCHLORIDE
     Indication: PRODUCT USED FOR UNKNOWN INDICATION
     Route: 065
  10. PREGABALIN. [Concomitant]
     Active Substance: PREGABALIN
     Indication: PRODUCT USED FOR UNKNOWN INDICATION
     Route: 065
  11. ACETAMINOPHENE [Concomitant]
     Indication: PRODUCT USED FOR UNKNOWN INDICATION
     Route: 065

REACTIONS (47)
  - Hypothalamo-pituitary disorder [Unknown]
  - Breast pain [Not Recovered/Not Resolved]
  - Somnolence [Unknown]
  - Urinary tract infection [Recovering/Resolving]
  - Haematocrit decreased [Unknown]
  - Dizziness [Unknown]
  - Malignant neoplasm progression [Unknown]
  - Blood iron decreased [Unknown]
  - Arthralgia [Not Recovered/Not Resolved]
  - Abdominal distension [Not Recovered/Not Resolved]
  - Mass [Unknown]
  - Cortisol decreased [Unknown]
  - Haemoglobin decreased [Unknown]
  - Tumour pain [Not Recovered/Not Resolved]
  - Hot flush [Unknown]
  - Skin exfoliation [Unknown]
  - Musculoskeletal pain [Unknown]
  - Pruritus generalised [Recovering/Resolving]
  - Hypophysitis [Unknown]
  - Red blood cell count decreased [Unknown]
  - Anxiety [Recovering/Resolving]
  - Contusion [Unknown]
  - Nausea [Unknown]
  - Feeling cold [Recovered/Resolved]
  - Hypotension [Recovering/Resolving]
  - Muscle spasms [Unknown]
  - Lymphocyte count decreased [Unknown]
  - Blood thyroid stimulating hormone increased [Unknown]
  - Feeling hot [Recovered/Resolved]
  - Pain in extremity [Not Recovered/Not Resolved]
  - Rash [Unknown]
  - Insomnia [Unknown]
  - Dry mouth [Recovering/Resolving]
  - Skin lesion [Not Recovered/Not Resolved]
  - Depression [Recovering/Resolving]
  - Herpes virus infection [Unknown]
  - Fatigue [Unknown]
  - Dyspnoea [Unknown]
  - Dysuria [Unknown]
  - Rash generalised [Unknown]
  - Diarrhoea [Not Recovered/Not Resolved]
  - Neutrophil count increased [Unknown]
  - Goitre [Unknown]
  - Night sweats [Unknown]
  - Headache [Recovering/Resolving]
  - Thyroid disorder [Unknown]
  - Blood test abnormal [Unknown]

NARRATIVE: CASE EVENT DATE: 20180327
